FAERS Safety Report 6660454-7 (Version None)
Quarter: 2010Q1

REPORT INFORMATION
  Report Type: 
  Country: None (occurrence: None)
  Receive Date: 20100326
  Receipt Date: 20100315
  Transmission Date: 20100710
  Serious: Yes (Hospitalization)
  Sender: FDA-Public Use
  Company Number: DSJ-2010-02451

PATIENT
  Age: 56 Year
  Sex: Female

DRUGS (6)
  1. OLMESARTAN MEDOXOMIL [Suspect]
     Indication: HYPERTENSION
     Dosage: 20 MG 920 MG, 1 IN 1 D), PER ORAL
     Route: 048
     Dates: start: 20100121, end: 20100128
  2. PREDNISOLONE [Concomitant]
  3. COTRIM [Concomitant]
  4. CYCLOPHOSPHAMIDE [Concomitant]
  5. PROMAC (POLAPREZINC) [Concomitant]
  6. REBAMIPIDE (REBAMIPIDE) [Concomitant]

REACTIONS (4)
  - CONDITION AGGRAVATED [None]
  - HYPERKALAEMIA [None]
  - HYPONATRAEMIA [None]
  - RENAL IMPAIRMENT [None]
